FAERS Safety Report 6998107-8 (Version None)
Quarter: 2010Q3

REPORT INFORMATION
  Report Type: 
  Country: None (occurrence: None)
  Receive Date: 20100920
  Receipt Date: 20100415
  Transmission Date: 20110219
  Serious: Yes (Hospitalization)
  Sender: FDA-Public Use
  Company Number: US-ASTRAZENECA-2006UW02150

PATIENT
  Age: 16256 Day
  Sex: Male
  Weight: 129.7 kg

DRUGS (59)
  1. SEROQUEL [Suspect]
     Indication: SCHIZOPHRENIA
     Route: 048
     Dates: start: 20010201
  2. SEROQUEL [Suspect]
     Route: 048
     Dates: start: 20030108
  3. SEROQUEL [Suspect]
     Route: 048
     Dates: start: 20030205, end: 20030401
  4. SEROQUEL [Suspect]
     Route: 048
     Dates: start: 20030404
  5. RISPERDAL [Concomitant]
     Indication: SCHIZOPHRENIA
     Route: 048
     Dates: start: 20000110
  6. RISPERDAL [Concomitant]
     Route: 048
     Dates: start: 20000410
  7. RISPERDAL [Concomitant]
     Route: 048
     Dates: start: 20010104, end: 20030401
  8. RISPERDAL [Concomitant]
     Route: 048
     Dates: start: 20030404
  9. WELLBUTRIN SR [Concomitant]
     Route: 048
     Dates: start: 20030404
  10. WELLBUTRIN SR [Concomitant]
     Route: 048
     Dates: start: 19991004
  11. CLONAZEPAM [Concomitant]
     Dosage: 0.5 MG - 3 MG
     Route: 048
     Dates: start: 19991115, end: 20060508
  12. NEURONTIN [Concomitant]
     Route: 048
     Dates: start: 19991004
  13. NEURONTIN [Concomitant]
     Route: 048
     Dates: start: 20030404
  14. TRIAMTERENE [Concomitant]
     Dosage: 37.5/25
     Dates: start: 20000214
  15. TRIAMTERENE [Concomitant]
     Dosage: 75/50
     Dates: start: 20010720
  16. CELEBREX [Concomitant]
     Dates: start: 20000314
  17. ZOLOFT [Concomitant]
     Route: 048
     Dates: start: 19991004, end: 20060210
  18. ZOLOFT [Concomitant]
     Dosage: TAKE ONE AND HALF TABLETS DAILY
     Route: 048
     Dates: start: 20030505
  19. ALBUTEROL [Concomitant]
     Route: 055
     Dates: start: 20000214
  20. BETAMETHASONE DIPROPIONATE [Concomitant]
     Route: 061
     Dates: start: 20000612
  21. IBUPROFEN [Concomitant]
     Route: 048
     Dates: start: 20000427
  22. ACETAMINOPHEN [Concomitant]
     Dosage: 500 MG-650 MG
     Route: 048
     Dates: start: 19990506
  23. SKELAXIN [Concomitant]
     Route: 048
  24. ROXICET [Concomitant]
     Dosage: 5-325 MG
     Route: 048
     Dates: start: 20020925
  25. GEODON [Concomitant]
     Route: 048
     Dates: start: 20030421
  26. GLYBURIDE [Concomitant]
     Dosage: TAKE TWO TABLETS DAILY
     Route: 048
     Dates: start: 20030419
  27. GLYBURIDE [Concomitant]
     Route: 048
  28. GLIPIZIDE [Concomitant]
     Route: 048
     Dates: start: 20031222
  29. GLIPIZIDE [Concomitant]
     Route: 048
     Dates: start: 20030422
  30. TRAMADOL HCL [Concomitant]
     Route: 048
     Dates: start: 20031219
  31. NYQUIL [Concomitant]
     Route: 048
     Dates: start: 20031111
  32. TRIAMCINOLONE [Concomitant]
     Route: 061
     Dates: start: 20030908
  33. TRAZODONE HCL [Concomitant]
     Route: 048
     Dates: start: 20040209
  34. RANITIDINE [Concomitant]
     Indication: GASTROOESOPHAGEAL REFLUX DISEASE
     Route: 048
     Dates: start: 20040811
  35. PRILOSEC OTC [Concomitant]
     Route: 048
     Dates: start: 20041019
  36. MIRTAZAPINE [Concomitant]
     Route: 048
     Dates: start: 20050104
  37. MIRTAZAPINE [Concomitant]
     Route: 048
     Dates: start: 20060804
  38. LISINOPRIL [Concomitant]
     Route: 048
     Dates: start: 20050203
  39. LISINOPRIL [Concomitant]
     Route: 048
     Dates: start: 20050506
  40. AMBIEN [Concomitant]
     Route: 048
     Dates: start: 20050104
  41. CYCLOBENZAPRINE [Concomitant]
     Route: 048
     Dates: start: 20050506
  42. TRICOR [Concomitant]
     Route: 048
     Dates: start: 20050809
  43. METFORMIN [Concomitant]
     Route: 048
     Dates: start: 20060210
  44. METFORMIN [Concomitant]
     Route: 048
     Dates: start: 20060515
  45. ALPRAZOLAM [Concomitant]
     Route: 048
     Dates: start: 20060509
  46. GEMFIBROZIL [Concomitant]
     Route: 048
     Dates: start: 20060614
  47. DICLOXACILLIN [Concomitant]
     Route: 048
     Dates: start: 20060605
  48. CODEINE [Concomitant]
     Dosage: 300-30 MG
     Route: 048
     Dates: start: 20070118
  49. DIPROLENE [Concomitant]
     Route: 061
     Dates: start: 20020107
  50. CELEXA [Concomitant]
     Dosage: 20 MG - 40 MG
     Route: 048
     Dates: start: 20060210
  51. INSULINE [Concomitant]
     Route: 042
     Dates: start: 20030418
  52. INSULIN [Concomitant]
     Dosage: SLIDING SCALE
     Route: 058
     Dates: start: 20030419
  53. GLUCOPHAGE [Concomitant]
     Route: 048
     Dates: end: 20060808
  54. GLUCOPHAGE [Concomitant]
     Route: 048
     Dates: start: 20060808
  55. LOPID [Concomitant]
     Indication: HYPERLIPIDAEMIA
  56. LIPITOR [Concomitant]
     Indication: HYPERLIPIDAEMIA
     Route: 048
     Dates: start: 20060508
  57. VIOXX [Concomitant]
     Route: 048
     Dates: start: 20030419
  58. LOXITANE [Concomitant]
     Indication: AGITATION
     Route: 048
     Dates: start: 19990507
  59. ATIVAN [Concomitant]
     Indication: AGITATION
     Route: 048
     Dates: start: 19990307

REACTIONS (1)
  - DIABETES MELLITUS [None]
